FAERS Safety Report 7539127-4 (Version None)
Quarter: 2011Q2

REPORT INFORMATION
  Report Type: 
  Country: None (occurrence: None)
  Receive Date: 20110610
  Receipt Date: 20021121
  Transmission Date: 20111010
  Serious: Yes (Death)
  Sender: FDA-Public Use
  Company Number: PHFR2002GB02175

PATIENT
  Sex: Male

DRUGS (4)
  1. DIAZEPAM [Concomitant]
     Indication: PANIC DISORDER
     Dosage: 6 MG/DAY
     Route: 048
     Dates: start: 20010201, end: 20020706
  2. CLOZAPINE [Suspect]
     Indication: SCHIZOPHRENIA
     Dosage: 800MG/DAY
     Route: 048
     Dates: start: 20010201
  3. VENLAFAXINE [Concomitant]
     Indication: DEPRESSION
     Dosage: 300 MG/DAY
     Route: 048
     Dates: start: 20010212, end: 20020706
  4. CLOZAPINE [Suspect]
     Dosage: 500MG/DAY
     Route: 048

REACTIONS (11)
  - CONGESTIVE CARDIOMYOPATHY [None]
  - INTRACARDIAC THROMBUS [None]
  - LYMPHOCYTOSIS [None]
  - DYSPNOEA [None]
  - LIVER FUNCTION TEST ABNORMAL [None]
  - BLOOD THYROID STIMULATING HORMONE INCREASED [None]
  - CEREBRAL ISCHAEMIA [None]
  - ROULEAUX FORMATION [None]
  - CAROTID ARTERIAL EMBOLUS [None]
  - NEUTROPHILIA [None]
  - THROMBOCYTOSIS [None]
